FAERS Safety Report 15950798 (Version 2)
Quarter: 2019Q1

REPORT INFORMATION
  Report Type: Spontaneous
  Country: IE (occurrence: IE)
  Receive Date: 20190211
  Receipt Date: 20190226
  Transmission Date: 20190417
  Serious: Yes (Other)
  Sender: FDA-Public Use
  Company Number: IE-MYLANLABS-2019M1011454

PATIENT
  Age: 48 Year
  Sex: Male

DRUGS (6)
  1. XANAX [Suspect]
     Active Substance: ALPRAZOLAM
     Indication: PRODUCT USED FOR UNKNOWN INDICATION
     Dosage: UNK
  2. HALCION [Suspect]
     Active Substance: TRIAZOLAM
     Indication: INSOMNIA
     Dosage: 250 MICROGRAM, (0.25MG-0.5MG DAILY)
     Route: 048
     Dates: start: 20180706, end: 20180709
  3. SPORANOX [Concomitant]
     Active Substance: ITRACONAZOLE
     Indication: FUNGAL INFECTION
     Dosage: 100 MILLIGRAM
     Route: 048
     Dates: start: 20180618, end: 20180706
  4. DALMANE [Suspect]
     Active Substance: FLURAZEPAM HYDROCHLORIDE
     Indication: INSOMNIA
     Dosage: UNK
  5. DIFLUCAN [Concomitant]
     Active Substance: FLUCONAZOLE
     Indication: FUNGAL INFECTION
     Dosage: 150 MILLIGRAM
     Route: 048
     Dates: start: 20180611, end: 20180706
  6. NORTEM [Suspect]
     Active Substance: TEMAZEPAM
     Indication: PRODUCT USED FOR UNKNOWN INDICATION
     Dosage: 10 MILLIGRAM

REACTIONS (16)
  - Neuropathy peripheral [Not Recovered/Not Resolved]
  - Decreased appetite [Not Recovered/Not Resolved]
  - Oral candidiasis [Unknown]
  - Drug ineffective [Unknown]
  - Paronychia [Not Recovered/Not Resolved]
  - Dry eye [Not Recovered/Not Resolved]
  - Vision blurred [Not Recovered/Not Resolved]
  - Skin odour abnormal [Unknown]
  - Diarrhoea [Unknown]
  - Eye disorder [Not Recovered/Not Resolved]
  - Malaise [Not Recovered/Not Resolved]
  - Product lot number issue [Unknown]
  - Therapeutic response unexpected [Unknown]
  - Disturbance in attention [Not Recovered/Not Resolved]
  - Dysgeusia [Unknown]
  - Rash [Not Recovered/Not Resolved]

NARRATIVE: CASE EVENT DATE: 20180709
